FAERS Safety Report 6609412-9 (Version None)
Quarter: 2010Q1

REPORT INFORMATION
  Report Type: 
  Country: None (occurrence: None)
  Receive Date: 20100224
  Receipt Date: 20100217
  Transmission Date: 20100710
  Serious: Yes (Other)
  Sender: FDA-Public Use
  Company Number: B0394497A

PATIENT
  Age: 55 Year
  Sex: Female

DRUGS (7)
  1. ONDANSETRON HYDROCHLORIDE [Suspect]
     Indication: VOMITING
     Dosage: 8 MG / INTRAVENOUS
     Route: 042
  2. CYCLOPHOSPHAMIDE [Concomitant]
  3. FLUOROURACIL [Concomitant]
  4. EPIRUBICIN [Concomitant]
  5. DEXAMETHASONE [Concomitant]
  6. SODIUM CHLORIDE [Concomitant]
  7. METOCLOPRAMIDE [Concomitant]

REACTIONS (1)
  - GRAND MAL CONVULSION [None]
